FAERS Safety Report 12833351 (Version 9)
Quarter: 2019Q4

REPORT INFORMATION
  Report Type: Report from Study
  Country: US (occurrence: US)
  Receive Date: 20161010
  Receipt Date: 20191101
  Transmission Date: 20200122
  Serious: Yes (Hospitalization, Other)
  Sender: FDA-Public Use
  Company Number: US-ACTELION-A-US2016-143458

PATIENT
  Age: 63 Year
  Sex: Female
  Weight: 97.51 kg

DRUGS (5)
  1. ADEMPAS [Concomitant]
     Active Substance: RIOCIGUAT
  2. WARFARIN [Concomitant]
     Active Substance: WARFARIN
  3. XARELTO [Concomitant]
     Active Substance: RIVAROXABAN
  4. OPSUMIT [Suspect]
     Active Substance: MACITENTAN
     Dosage: 10 MG, QD
     Route: 048
     Dates: start: 20160112, end: 20170318
  5. OPSUMIT [Suspect]
     Active Substance: MACITENTAN
     Indication: PULMONARY HYPERTENSION
     Dosage: 10 MG, QD
     Route: 048
     Dates: start: 20190522

REACTIONS (18)
  - Thrombectomy [Unknown]
  - Blood potassium abnormal [Recovered/Resolved]
  - Gastric disorder [Unknown]
  - Fatigue [Unknown]
  - Pulmonary endarterectomy [Recovered/Resolved]
  - Influenza like illness [Unknown]
  - Fluid overload [Recovered/Resolved]
  - Oral surgery [Unknown]
  - Pain [Unknown]
  - Dyspnoea [Unknown]
  - Back pain [Unknown]
  - Dizziness [Unknown]
  - Chest pain [Unknown]
  - Intervertebral disc protrusion [Unknown]
  - Palpitations [Unknown]
  - Haemoglobin decreased [Recovered/Resolved]
  - Feeling abnormal [Unknown]
  - Hypersensitivity [Unknown]

NARRATIVE: CASE EVENT DATE: 20160923
